FAERS Safety Report 24921768 (Version 1)
Quarter: 2025Q1

REPORT INFORMATION
  Report Type: Spontaneous
  Country: TR (occurrence: TR)
  Receive Date: 20250204
  Receipt Date: 20250204
  Transmission Date: 20250408
  Serious: Yes (Hospitalization, Other)
  Sender: PURACAP PHARMACEUTICAL LLC
  Company Number: TR-PURACAP-TR-2025EPCLIT00110

PATIENT
  Age: 40 Year
  Sex: Female

DRUGS (9)
  1. MEMANTINE HYDROCHLORIDE [Suspect]
     Active Substance: MEMANTINE HYDROCHLORIDE
     Indication: Catatonia
     Route: 065
  2. CLOZAPINE [Suspect]
     Active Substance: CLOZAPINE
     Indication: Catatonia
     Route: 065
  3. MIGLUSTAT [Concomitant]
     Active Substance: MIGLUSTAT
     Route: 065
  4. LORAZEPAM [Concomitant]
     Active Substance: LORAZEPAM
     Indication: Catatonia
     Route: 048
  5. LORAZEPAM [Concomitant]
     Active Substance: LORAZEPAM
     Route: 065
  6. LORAZEPAM [Concomitant]
     Active Substance: LORAZEPAM
     Route: 065
  7. LORAZEPAM [Concomitant]
     Active Substance: LORAZEPAM
     Route: 048
  8. LORAZEPAM [Concomitant]
     Active Substance: LORAZEPAM
     Route: 065
  9. LORAZEPAM [Concomitant]
     Active Substance: LORAZEPAM
     Route: 065

REACTIONS (2)
  - Neuroleptic malignant syndrome [Recovered/Resolved]
  - Product use in unapproved indication [Unknown]
